FAERS Safety Report 5884767-1 (Version None)
Quarter: 2008Q3

REPORT INFORMATION
  Report Type: 
  Country: None (occurrence: None)
  Receive Date: 20080916
  Receipt Date: 20080908
  Transmission Date: 20090109
  Serious: Yes (Hospitalization)
  Sender: FDA-Public Use
  Company Number: US-ASTRAZENECA-2006UW20675

PATIENT
  Age: 970 Month
  Sex: Female
  Weight: 61.2 kg

DRUGS (10)
  1. ATACAND [Suspect]
     Indication: HYPERTENSION
     Route: 048
  2. ATACAND [Interacting]
     Route: 048
  3. ATACAND [Interacting]
     Route: 048
  4. ATACAND [Interacting]
     Route: 048
  5. OTC MEDICATIONS [Interacting]
  6. LUTEIN [Concomitant]
  7. VITAMIN B [Concomitant]
  8. CALCIUM [Concomitant]
  9. CLOROZAPATE [Concomitant]
  10. XANAX [Concomitant]

REACTIONS (4)
  - BLOOD PRESSURE DECREASED [None]
  - BLOOD PRESSURE INCREASED [None]
  - BLOOD PRESSURE SYSTOLIC INCREASED [None]
  - DRUG INTERACTION [None]
